FAERS Safety Report 24761597 (Version 1)
Quarter: 2024Q4

REPORT INFORMATION
  Report Type: Spontaneous
  Country: CN (occurrence: CN)
  Receive Date: 20241220
  Receipt Date: 20241220
  Transmission Date: 20250115
  Serious: Yes (Disabling)
  Sender: PFIZER
  Company Number: CN-PFIZER INC-PV202400165150

PATIENT
  Age: 57 Year
  Sex: Male
  Weight: 60 kg

DRUGS (1)
  1. ZYVOX [Suspect]
     Active Substance: LINEZOLID
     Indication: Brain abscess
     Dosage: 600 MG, 2X/DAY
     Route: 048
     Dates: start: 20240906, end: 20240923

REACTIONS (2)
  - Hypogeusia [Recovering/Resolving]
  - Dry mouth [Recovering/Resolving]

NARRATIVE: CASE EVENT DATE: 20240909
